FAERS Safety Report 13891208 (Version 3)
Quarter: 2017Q3

REPORT INFORMATION
  Report Type: Spontaneous
  Country: US (occurrence: US)
  Receive Date: 20170822
  Receipt Date: 20170928
  Transmission Date: 20171127
  Serious: Yes (Hospitalization)
  Sender: FDA-Public Use
  Company Number: US-PFIZER INC-2017356786

PATIENT
  Age: 72 Year
  Sex: Female

DRUGS (2)
  1. PREDNISONE. [Concomitant]
     Active Substance: PREDNISONE
     Dosage: UNK
  2. METHOTREXATE SODIUM. [Suspect]
     Active Substance: METHOTREXATE SODIUM
     Indication: RHEUMATOID ARTHRITIS
     Dosage: 10 MG, UNK
     Dates: start: 2016

REACTIONS (9)
  - Asthenia [Unknown]
  - Headache [Unknown]
  - Alopecia [Unknown]
  - Gastric disorder [Unknown]
  - Dizziness [Unknown]
  - Nausea [Unknown]
  - Chills [Unknown]
  - Decreased appetite [Unknown]
  - Pruritus [Unknown]
